FAERS Safety Report 22025041 (Version 3)
Quarter: 2023Q1

REPORT INFORMATION
  Report Type: Spontaneous
  Country: US (occurrence: None)
  Receive Date: 20230223
  Receipt Date: 20230312
  Transmission Date: 20230417
  Serious: Yes (Hospitalization)
  Sender: FDA-Public Use
  Company Number: US-ROCHE-3272728

PATIENT
  Age: 79 Year
  Sex: Male

DRUGS (7)
  1. CELLCEPT [Suspect]
     Active Substance: MYCOPHENOLATE MOFETIL
     Indication: Product used for unknown indication
     Route: 065
     Dates: start: 202302
  2. KRYSTEXXA [Suspect]
     Active Substance: PEGLOTICASE
     Indication: Product used for unknown indication
     Dosage: 1ST INFUSION
     Route: 042
     Dates: start: 20220927
  3. KRYSTEXXA [Suspect]
     Active Substance: PEGLOTICASE
     Dosage: 2ND INFUSION
     Route: 042
     Dates: start: 20221011
  4. KRYSTEXXA [Suspect]
     Active Substance: PEGLOTICASE
     Dosage: 5TH INFUSION
     Route: 042
     Dates: start: 20221123
  5. KRYSTEXXA [Suspect]
     Active Substance: PEGLOTICASE
     Dosage: 6TH INFUSION
     Route: 042
     Dates: start: 202212
  6. KRYSTEXXA [Suspect]
     Active Substance: PEGLOTICASE
     Dosage: PATIENT COMPLETED 8 INFUSIONS
     Route: 042
     Dates: start: 20230112
  7. KRYSTEXXA [Suspect]
     Active Substance: PEGLOTICASE
     Route: 042
     Dates: start: 20230126

REACTIONS (8)
  - Gout [Unknown]
  - Blood uric acid abnormal [Unknown]
  - Walking aid user [Unknown]
  - Off label use [Unknown]
  - COVID-19 [Unknown]
  - Dyspepsia [Recovered/Resolved]
  - Chest discomfort [Recovered/Resolved]
  - Drug ineffective [Unknown]
